FAERS Safety Report 6626055-1 (Version None)
Quarter: 2010Q1

REPORT INFORMATION
  Report Type: 
  Country: None (occurrence: None)
  Receive Date: 20100310
  Receipt Date: 20100305
  Transmission Date: 20100710
  Serious: Yes (Hospitalization)
  Sender: FDA-Public Use
  Company Number: A0837220A

PATIENT
  Sex: Female

DRUGS (2)
  1. TYKERB [Suspect]
     Dosage: 1250MG PER DAY
     Route: 048
     Dates: start: 20091215
  2. XELODA [Concomitant]
     Indication: DRUG USE FOR UNKNOWN INDICATION
     Dosage: 3CAP TWICE PER DAY
     Route: 065

REACTIONS (2)
  - ADVERSE EVENT [None]
  - FATIGUE [None]
